FAERS Safety Report 5096783-0 (Version None)
Quarter: 2006Q3

REPORT INFORMATION
  Report Type: 
  Country: None (occurrence: None)
  Receive Date: 20060831
  Receipt Date: 20060817
  Transmission Date: 20061208
  Serious: Yes (Hospitalization)
  Sender: FDA-Public Use
  Company Number: 226054

PATIENT
  Age: 51 Year
  Sex: Female
  Weight: 58.6 kg

DRUGS (4)
  1. AVASTIN [Suspect]
     Indication: COLORECTAL CANCER
     Dosage: 300 MG, Q2W, INTRAVENOUS
     Route: 042
     Dates: start: 20051213
  2. OXALIPLATIN [Concomitant]
  3. FLUOROURACIL [Concomitant]
  4. OMEPRAZOLE [Concomitant]

REACTIONS (4)
  - COAGULOPATHY [None]
  - FEBRILE NEUTROPENIA [None]
  - RENAL FAILURE [None]
  - SUBILEUS [None]
